FAERS Safety Report 5891860-6 (Version None)
Quarter: 2008Q3

REPORT INFORMATION
  Report Type: 
  Country: None (occurrence: None)
  Receive Date: 20080922
  Receipt Date: 20080910
  Transmission Date: 20090109
  Serious: Yes (Death)
  Sender: FDA-Public Use
  Company Number: GB-PFIZER INC-2008076505

PATIENT
  Sex: Female

DRUGS (7)
  1. DOXORUBICIN HCL [Suspect]
     Dosage: DAILY DOSE:60MG/M2-FREQ:1 IN 3 WEEKS
     Route: 042
     Dates: start: 20071205, end: 20071206
  2. NEUPOGEN [Suspect]
     Indication: CHEMOTHERAPY
     Dosage: DAILY DOSE:5MCG/KG
     Route: 058
     Dates: start: 20071207, end: 20071210
  3. DOCETAXEL [Suspect]
     Dosage: DAILY DOSE:75MG/M2-FREQ:1 IN 3 WEEKS
     Route: 042
     Dates: start: 20071206, end: 20071206
  4. DEXAMETHASONE [Concomitant]
     Dosage: DAILY DOSE:9MG
     Route: 048
     Dates: start: 20071205, end: 20071207
  5. DEXAMETHASONE [Concomitant]
     Route: 042
     Dates: start: 20071211, end: 20071211
  6. AMINOPYRIDINE [Concomitant]
  7. DIPYRONE TAB [Concomitant]
     Dosage: DAILY DOSE:500MG
     Route: 042

REACTIONS (5)
  - ASTHENIA [None]
  - DEATH [None]
  - HYPERGLYCAEMIA [None]
  - PAIN IN EXTREMITY [None]
  - PYREXIA [None]
